FAERS Safety Report 14776018 (Version 1)
Quarter: 2018Q2

REPORT INFORMATION
  Report Type: Spontaneous
  Country: AU (occurrence: AU)
  Receive Date: 20180418
  Receipt Date: 20180418
  Transmission Date: 20180711
  Serious: Yes (Other)
  Sender: FDA-Public Use
  Company Number: AU-SUNOVION-2018DSP004388

PATIENT
  Age: 36 Year
  Sex: Male

DRUGS (4)
  1. LATUDA [Suspect]
     Active Substance: LURASIDONE HYDROCHLORIDE
     Route: 048
  2. AMISULPRIDE [Concomitant]
     Active Substance: AMISULPRIDE
     Route: 065
  3. ARIPIPRAZOLE. [Concomitant]
     Active Substance: ARIPIPRAZOLE
     Route: 065
  4. ASENAPINE [Concomitant]
     Active Substance: ASENAPINE
     Indication: SCHIZOPHRENIA
     Route: 065

REACTIONS (8)
  - Akathisia [Unknown]
  - Drug effect incomplete [Unknown]
  - Sexual dysfunction [Unknown]
  - Anosognosia [Unknown]
  - Sedation [Unknown]
  - Therapy non-responder [Unknown]
  - Negative thoughts [Unknown]
  - Pyramidal tract syndrome [Unknown]
